FAERS Safety Report 25263537 (Version 1)
Quarter: 2025Q2

REPORT INFORMATION
  Report Type: Spontaneous
  Country: ES (occurrence: ES)
  Receive Date: 20250502
  Receipt Date: 20250502
  Transmission Date: 20250717
  Serious: Yes (Life-Threatening, Hospitalization)
  Sender: AUROBINDO
  Company Number: ES-AEMPS-1663542

PATIENT
  Age: 47 Year
  Sex: Female
  Weight: 90 kg

DRUGS (2)
  1. QUETIAPINE [Suspect]
     Active Substance: QUETIAPINE
     Indication: Aggression
     Dosage: 200 MILLIGRAM, ONCE A DAY
     Route: 048
     Dates: start: 20111201, end: 20240811
  2. ESLICARBAZEPINE ACETATE [Suspect]
     Active Substance: ESLICARBAZEPINE ACETATE
     Indication: Atypical benign partial epilepsy
     Dosage: 800 MILLIGRAM, ONCE A DAY
     Route: 048
     Dates: start: 20120401, end: 20230930

REACTIONS (1)
  - Sideroblastic anaemia [Recovered/Resolved]

NARRATIVE: CASE EVENT DATE: 20220407
